FAERS Safety Report 13249016 (Version 1)
Quarter: 2017Q1

REPORT INFORMATION
  Report Type: Spontaneous
  Country: US (occurrence: US)
  Receive Date: 20170218
  Receipt Date: 20170218
  Transmission Date: 20170428
  Serious: No
  Sender: FDA-Public Use
  Company Number: US-ALLERGAN-1651233US

PATIENT
  Sex: Female
  Weight: 48.73 kg

DRUGS (3)
  1. RESTASIS [Suspect]
     Active Substance: CYCLOSPORINE
     Indication: DRY EYE
     Dosage: 2 GTT, Q12H
     Route: 047
     Dates: start: 201603, end: 20160413
  2. LYRICA [Concomitant]
     Active Substance: PREGABALIN
     Dosage: 75 MG, BID
     Route: 048
     Dates: start: 20160331, end: 20160414
  3. LYRICA [Concomitant]
     Active Substance: PREGABALIN
     Indication: NEURALGIA
     Dosage: 50 MG, UNK
     Route: 048
     Dates: start: 20160331, end: 20160414

REACTIONS (4)
  - Oedema peripheral [Recovering/Resolving]
  - Inappropriate schedule of drug administration [Unknown]
  - Vision blurred [Not Recovered/Not Resolved]
  - Increased tendency to bruise [Unknown]
